FAERS Safety Report 9010845 (Version 1)
Quarter: 2013Q1

REPORT INFORMATION
  Report Type: Spontaneous
  Country: ES (occurrence: ES)
  Receive Date: 20130109
  Receipt Date: 20130109
  Transmission Date: 20140127
  Serious: Yes (Other)
  Sender: FDA-Public Use
  Company Number: ES-SANOFI-AVENTIS-2013SA000701

PATIENT
  Age: 65 Year
  Sex: Male

DRUGS (5)
  1. CLEXANE [Suspect]
     Indication: PROPHYLAXIS
     Route: 058
     Dates: start: 20120720, end: 20120727
  2. AUGMENTIN [Suspect]
     Indication: POSTOPERATIVE WOUND INFECTION
     Route: 042
     Dates: start: 20120717, end: 20120806
  3. PANTOPRAZOLE [Suspect]
     Indication: PROPHYLAXIS
     Route: 042
     Dates: start: 20120718, end: 20120726
  4. SIMVASTATIN [Concomitant]
     Indication: DYSLIPIDAEMIA
     Route: 048
     Dates: start: 2010
  5. PARACETAMOL [Concomitant]
     Indication: PAIN
     Route: 042
     Dates: start: 20120718

REACTIONS (1)
  - Hepatitis [Recovered/Resolved]
